FAERS Safety Report 8965576 (Version 1)
Quarter: 2012Q4

REPORT INFORMATION
  Report Type: Spontaneous
  Country: GB (occurrence: None)
  Receive Date: 20121205
  Receipt Date: 20121205
  Transmission Date: 20130627
  Serious: Yes (Disabling)
  Sender: FDA-Public Use
  Company Number: 1506459

PATIENT
  Age: 75 Year

DRUGS (4)
  1. PAMIDRONIC ACID [Suspect]
     Indication: DRUG USE FOR UNKNOWN INDICATION
     Route: 041
     Dates: start: 20120419, end: 20120615
  2. CYCLOPHOSPHAMIDE [Concomitant]
  3. THALIDOMIDE [Concomitant]
  4. DEXAMETHASONE [Concomitant]

REACTIONS (2)
  - Choroidal effusion [None]
  - Uveitis [None]
